FAERS Safety Report 19428819 (Version 1)
Quarter: 2021Q2

REPORT INFORMATION
  Report Type: Spontaneous
  Country: US (occurrence: US)
  Receive Date: 20210617
  Receipt Date: 20210617
  Transmission Date: 20210717
  Serious: Yes (Life-Threatening, Hospitalization)
  Sender: FDA-Public Use
  Company Number: None

PATIENT
  Age: 29 Year
  Sex: Female
  Weight: 98 kg

DRUGS (1)
  1. LUMASON [Suspect]
     Active Substance: SULFUR HEXAFLUORIDE
     Route: 040

REACTIONS (4)
  - Dyspnoea [None]
  - Paraesthesia [None]
  - Vomiting [None]
  - Tachycardia [None]

NARRATIVE: CASE EVENT DATE: 20210324
